FAERS Safety Report 6337910-4 (Version None)
Quarter: 2009Q3

REPORT INFORMATION
  Report Type: 
  Country: None (occurrence: None)
  Receive Date: 20090902
  Receipt Date: 20090821
  Transmission Date: 20100115
  Serious: Yes (Hospitalization, Other)
  Sender: FDA-Public Use
  Company Number: US-CELGENEUS-163-21880-09041084

PATIENT
  Sex: Female
  Weight: 73.094 kg

DRUGS (4)
  1. REVLIMID [Suspect]
     Indication: AMYLOIDOSIS
     Route: 048
     Dates: start: 20081201, end: 20090401
  2. REVLIMID [Suspect]
     Route: 048
     Dates: start: 20080901
  3. REVLIMID [Suspect]
     Route: 048
     Dates: start: 20090405, end: 20090401
  4. REVLIMID [Suspect]
     Route: 048
     Dates: start: 20090420

REACTIONS (18)
  - ARTHRALGIA [None]
  - BLOOD COUNT ABNORMAL [None]
  - CONSTIPATION [None]
  - COUGH [None]
  - DYSPNOEA [None]
  - FATIGUE [None]
  - HYPOAESTHESIA [None]
  - INSOMNIA [None]
  - JOINT SWELLING [None]
  - MALAISE [None]
  - OEDEMA PERIPHERAL [None]
  - PERICARDIAL EFFUSION [None]
  - PNEUMONIA [None]
  - RENAL DISORDER [None]
  - RHINORRHOEA [None]
  - STOMATITIS [None]
  - VIRAL INFECTION [None]
  - WEIGHT INCREASED [None]
